FAERS Safety Report 5376459-2 (Version None)
Quarter: 2007Q3

REPORT INFORMATION
  Report Type: 
  Country: None (occurrence: None)
  Receive Date: 20070702
  Receipt Date: 20070627
  Transmission Date: 20080115
  Serious: Yes (Other)
  Sender: FDA-Public Use
  Company Number: US-BOEHRINGER INGELHEIM PHARMACEUTICALS, INC.-2007-DE-03800GD

PATIENT
  Age: 67 Year
  Sex: Female

DRUGS (3)
  1. DIPYRIDAMOLE AMPOULE [Suspect]
     Indication: CARDIAC PHARMACOLOGIC STRESS TEST
  2. METOPROLOL SUCCINATE [Suspect]
     Indication: HYPERTENSION
  3. THEOPHYLLINE [Suspect]

REACTIONS (5)
  - ATRIAL FIBRILLATION [None]
  - CARDIAC ARREST [None]
  - DIZZINESS [None]
  - LOSS OF CONSCIOUSNESS [None]
  - NAUSEA [None]
